FAERS Safety Report 25450814 (Version 1)
Quarter: 2025Q2

REPORT INFORMATION
  Report Type: Spontaneous
  Country: CN (occurrence: CN)
  Receive Date: 20250618
  Receipt Date: 20250618
  Transmission Date: 20250716
  Serious: Yes (Other)
  Sender: DAIICHI
  Company Number: CN-DSJP-DS-2025-147659-CN

PATIENT
  Age: 33 Year
  Sex: Female
  Weight: 47.4 kg

DRUGS (1)
  1. ENHERTU [Suspect]
     Active Substance: FAM-TRASTUZUMAB DERUXTECAN-NXKI
     Indication: Breast cancer
     Dosage: 250 MG, QD
     Route: 041
     Dates: start: 20250506, end: 20250507

REACTIONS (1)
  - Myelosuppression [Recovering/Resolving]

NARRATIVE: CASE EVENT DATE: 20250528
